FAERS Safety Report 5411386-3 (Version None)
Quarter: 2007Q3

REPORT INFORMATION
  Report Type: 
  Country: None (occurrence: None)
  Receive Date: 20070810
  Receipt Date: 20070803
  Transmission Date: 20080115
  Serious: Yes (Other)
  Sender: FDA-Public Use
  Company Number: JP-ASTRAZENECA-2007AP04769

PATIENT
  Age: 57 Year
  Sex: Female

DRUGS (3)
  1. PULMICORT [Suspect]
     Indication: ASTHMA
     Route: 055
     Dates: start: 20070704, end: 20070705
  2. FLUTIDE [Concomitant]
     Indication: ASTHMA
     Route: 055
     Dates: end: 20070703
  3. SEREVENT [Concomitant]
     Indication: ASTHMA
     Route: 055
     Dates: end: 20070703

REACTIONS (2)
  - FACE OEDEMA [None]
  - OEDEMA PERIPHERAL [None]
